FAERS Safety Report 7895039-8 (Version None)
Quarter: 2011Q4

REPORT INFORMATION
  Report Type: 
  Country: None (occurrence: None)
  Receive Date: 20111106
  Receipt Date: 20110822
  Transmission Date: 20120403
  Serious: Yes (Other)
  Sender: FDA-Public Use
  Company Number: US-AMGEN-USASP2011042782

PATIENT
  Age: 40 Year
  Sex: Female

DRUGS (2)
  1. ENBREL [Suspect]
     Indication: RHEUMATOID ARTHRITIS
     Dosage: 50 MG, QWK
     Dates: start: 20100301
  2. METHOTREXATE [Concomitant]
     Dosage: UNK
     Dates: end: 20110501

REACTIONS (8)
  - HEPATIC ENZYME INCREASED [None]
  - ARTHRALGIA [None]
  - VOMITING [None]
  - RHEUMATOID ARTHRITIS [None]
  - DRUG HYPERSENSITIVITY [None]
  - SINUSITIS [None]
  - NAUSEA [None]
  - ALOPECIA [None]
